FAERS Safety Report 5567559-2 (Version None)
Quarter: 2007Q4

REPORT INFORMATION
  Report Type: 
  Country: None (occurrence: None)
  Receive Date: 20071214
  Receipt Date: 20071203
  Transmission Date: 20080405
  Serious: Yes (Other)
  Sender: FDA-Public Use
  Company Number: 2007AL005174

PATIENT
  Age: 67 Year
  Sex: Female

DRUGS (4)
  1. ACYCLOVIR [Suspect]
     Indication: HERPES SIMPLEX
     Dosage: 200 MG;PO
     Route: 048
     Dates: start: 20070903, end: 20070903
  2. DIGOXIN [Concomitant]
  3. LEVOTHYROXINE SODIUM [Concomitant]
  4. ALOPAM [Concomitant]

REACTIONS (3)
  - BURNING SENSATION [None]
  - FEELING COLD [None]
  - PAIN IN EXTREMITY [None]
